FAERS Safety Report 25662013 (Version 2)
Quarter: 2025Q3

REPORT INFORMATION
  Report Type: Report from Study
  Country: US (occurrence: US)
  Receive Date: 20250809
  Receipt Date: 20250824
  Transmission Date: 20251021
  Serious: No
  Sender: SANDOZ
  Company Number: US-SANDOZ-SDZ2025US056053

PATIENT
  Sex: Male

DRUGS (2)
  1. OMNITROPE [Suspect]
     Active Substance: SOMATROPIN
     Indication: Short stature
     Dosage: 0.22 ML, QD (STRENGTH 5 MG/ML )
     Route: 058
  2. OMNITROPE [Suspect]
     Active Substance: SOMATROPIN
     Indication: Short stature
     Dosage: 0.22 ML, QD (STRENGTH 5 MG/ML )
     Route: 058

REACTIONS (2)
  - Injection site urticaria [Recovered/Resolved]
  - Adverse event [Unknown]
